FAERS Safety Report 10962167 (Version 2)
Quarter: 2015Q3

REPORT INFORMATION
  Report Type: Spontaneous
  Country: US (occurrence: US)
  Receive Date: 20150327
  Receipt Date: 20150914
  Transmission Date: 20151125
  Serious: No
  Sender: FDA-Public Use
  Company Number: US-PFIZER INC-2015106522

PATIENT
  Age: 40 Year
  Sex: Female

DRUGS (22)
  1. CARAFATE [Concomitant]
     Active Substance: SUCRALFATE
     Dosage: 1 GM/10ML SUSPENSION, 4X/DAY
     Route: 048
  2. DRONABINOL. [Concomitant]
     Active Substance: DRONABINOL
     Dosage: 5 MG, 2X/DAY
     Route: 048
  3. DURAGESIC [Concomitant]
     Active Substance: FENTANYL
     Dosage: 25 MCG/HR PATCH 72 HR TRANSDERMAL  EVERY 72 HOURS
     Route: 062
  4. PROTONIX [Concomitant]
     Active Substance: PANTOPRAZOLE SODIUM
     Dosage: 40 MG, DAILY
     Route: 048
  5. XALKORI [Suspect]
     Active Substance: CRIZOTINIB
     Indication: NON-SMALL CELL LUNG CANCER
     Dosage: 250 MG, 2X/DAY
     Route: 048
     Dates: start: 20131114, end: 20150227
  6. XARELTO [Concomitant]
     Active Substance: RIVAROXABAN
     Dosage: 15 MG (1.5 X10 MG), 2X/DAY
     Route: 048
  7. ALPRAZOLAM. [Concomitant]
     Active Substance: ALPRAZOLAM
     Dosage: 0.25 MG, 3X/DAY (1 (0.25 MG) TABLET ORAL T.I.D. PRN)
     Route: 048
  8. SENNA [Concomitant]
     Active Substance: SENNA LEAF\SENNOSIDES\SENNOSIDES A AND B
     Dosage: 8.6 MG, 2X/DAY AS NEEDED
     Route: 048
  9. SYNTHROID [Concomitant]
     Active Substance: LEVOTHYROXINE SODIUM
     Dosage: 100 ?G, DAILY
     Route: 048
  10. ABRAXANE [Concomitant]
     Active Substance: PACLITAXEL
     Dosage: 130 MG (AT 62.2 MG/M2) INTRAVENOUS DAILY SHORT OVER 30 MINUTES FOR 1 DAY
     Route: 042
  11. SIMETHICONE (DIMETHICONE) [Concomitant]
     Active Substance: DIMETHICONE
     Dosage: 2 (80 MG) TABLET, 4X/DAY
     Route: 048
  12. ALOXI [Concomitant]
     Active Substance: PALONOSETRON HYDROCHLORIDE
     Dosage: 0.25 MG, DAILY FOR 1 DAY
     Route: 042
  13. AMITIZA [Concomitant]
     Active Substance: LUBIPROSTONE
     Dosage: 24 ?G, 2X/DAY
     Route: 048
  14. POLYETHYLENE GLYCOL 3350. [Concomitant]
     Active Substance: POLYETHYLENE GLYCOL 3350
     Dosage: 17 POWDER, DAILY AS NEEDED
     Route: 048
  15. PROCHLORPERAZINE MALEATE. [Concomitant]
     Active Substance: PROCHLORPERAZINE MALEATE
     Dosage: 10 MG, AS NEEDED (Q 4 TO 6 HOURS)
     Route: 048
  16. EFFEXOR [Concomitant]
     Active Substance: VENLAFAXINE HYDROCHLORIDE
     Dosage: 225 MG (3 X 75 MG), DAILY
     Route: 048
  17. OXYCODONE HCL [Concomitant]
     Active Substance: OXYCODONE HYDROCHLORIDE
     Dosage: 1-2 (5 MG), AS NEEDED (Q 4 TO 6 HOURS)
     Route: 048
  18. LACTULOSE. [Concomitant]
     Active Substance: LACTULOSE
     Dosage: 30 ML (OF 10 G/15ML) SOLUTION, 2X/DAY
     Route: 048
  19. ZOLPIDEM TARTRATE. [Concomitant]
     Active Substance: ZOLPIDEM TARTRATE
     Dosage: 5 MG, AS NEEDED (AT BEDTIME)
     Route: 048
  20. DEXAMETHASONE SODIUM PHOSPHATE. [Concomitant]
     Active Substance: DEXAMETHASONE SODIUM PHOSPHATE
     Dosage: 10 MG, 1X/DAY FOR 1 DAY
     Route: 042
  21. EMEND [Concomitant]
     Active Substance: APREPITANT
     Dosage: 150 MG, DAILY
     Route: 042
  22. OXYCODONE HCL [Concomitant]
     Active Substance: OXYCODONE HYDROCHLORIDE
     Dosage: 10 MG, AS NEEDED (Q 4 TO 6 HOURS)
     Route: 048

REACTIONS (4)
  - Disease progression [Unknown]
  - Malaise [Unknown]
  - Pyrexia [Unknown]
  - Non-small cell lung cancer [Unknown]

NARRATIVE: CASE EVENT DATE: 2015
